FAERS Safety Report 13697062 (Version 1)
Quarter: 2017Q2

REPORT INFORMATION
  Report Type: Spontaneous
  Country: US (occurrence: US)
  Receive Date: 20170627
  Receipt Date: 20170627
  Transmission Date: 20170830
  Serious: Yes (Disabling)
  Sender: FDA-Public Use
  Company Number: None

PATIENT
  Age: 38 Year
  Sex: Female
  Weight: 72 kg

DRUGS (5)
  1. DIAZEPAM. [Suspect]
     Active Substance: DIAZEPAM
  2. ALPRAZOLAM. [Suspect]
     Active Substance: ALPRAZOLAM
     Indication: INSOMNIA
     Dates: start: 20110311, end: 20160522
  3. CYMBALTA [Concomitant]
     Active Substance: DULOXETINE HYDROCHLORIDE
  4. ESSENTIAL OILS. [Concomitant]
     Active Substance: ESSENTIAL OILS
  5. ALPRAZOLAM. [Suspect]
     Active Substance: ALPRAZOLAM
     Indication: ANXIETY
     Dates: start: 20110311, end: 20160522

REACTIONS (11)
  - Akathisia [None]
  - Panic attack [None]
  - Suicidal ideation [None]
  - Neuralgia [None]
  - Muscle spasms [None]
  - Withdrawal syndrome [None]
  - Anxiety [None]
  - Mental disorder [None]
  - Insomnia [None]
  - Cognitive disorder [None]
  - Tachycardia [None]

NARRATIVE: CASE EVENT DATE: 20141128
